FAERS Safety Report 6304261-3 (Version None)
Quarter: 2009Q3

REPORT INFORMATION
  Report Type: 
  Country: None (occurrence: None)
  Receive Date: 20090806
  Receipt Date: 20090620
  Transmission Date: 20100115
  Serious: Yes (Hospitalization)
  Sender: FDA-Public Use
  Company Number: 2009EU002890

PATIENT
  Age: 50 Year
  Sex: Female

DRUGS (24)
  1. TACROLIMUS [Suspect]
     Indication: RENAL TRANSPLANT
     Dosage: 2.5 MG, UID/QD, ORAL
     Route: 048
     Dates: start: 20030828
  2. DACLIZUMAB(DACLIZUMAB) [Suspect]
     Indication: RENAL TRANSPLANT
     Dosage: 100 MG /D, IV NOS; 50 MG, CYCLIC; IV NOS
     Route: 042
     Dates: start: 20030828, end: 20030911
  3. DACLIZUMAB(DACLIZUMAB) [Suspect]
     Indication: RENAL TRANSPLANT
     Dosage: 100 MG /D, IV NOS; 50 MG, CYCLIC; IV NOS
     Route: 042
     Dates: start: 20030911, end: 20031023
  4. MYCOPHENOLATE MOFETIL [Suspect]
     Indication: RENAL TRANSPLANT
     Dosage: 1 G, UID/QD, ORAL
     Route: 048
     Dates: start: 20030828
  5. DECORTIN H (PREDNISOLONE) [Suspect]
     Indication: RENAL TRANSPLANT
     Dosage: 5 MG, UID/QD, ORAL
     Route: 048
     Dates: start: 20030830
  6. PREDNISOLONE [Suspect]
     Indication: RENAL TRANSPLANT
     Dosage: 125 MG, UID/QD, IV NOS
     Route: 042
     Dates: start: 20030828, end: 20030830
  7. HYDROCORTISON(HYDROCORTISONE) [Suspect]
     Indication: RENAL TRANSPLANT
     Dosage: 30 MG, BID, IV NOS
     Route: 042
     Dates: start: 20040121, end: 20040128
  8. PROPALLYLONAL (PROPALLYLONAL) [Concomitant]
  9. COTRIM FORTE (SULFAMETHOZAZOLE, TRIMETHOPRIM) [Concomitant]
  10. CARVEDILOL [Concomitant]
  11. NORVASC [Concomitant]
  12. VALCYTE [Concomitant]
  13. ASPIRIN [Concomitant]
  14. SORTIS [Concomitant]
  15. AMPHOTERICIN B [Concomitant]
  16. GANCICLOVIR [Concomitant]
  17. ROCEPHIN [Concomitant]
  18. BAYOTENSIN (NITRENDIPINE) [Concomitant]
  19. CIPOBAY (CIPROFLOXACIN) [Concomitant]
  20. CLINDA-SAAR (CLINDAMYCIN HYDROCHLORIDE) [Concomitant]
  21. AMPICILLIN [Concomitant]
  22. CIFUROXIME (CEFUROXIME) [Concomitant]
  23. METRONIDAZOLE [Concomitant]
  24. VANCOMYCIN [Concomitant]

REACTIONS (7)
  - ANURIA [None]
  - BLOOD CREATINE INCREASED [None]
  - CARPAL TUNNEL SYNDROME [None]
  - COMPLICATIONS OF TRANSPLANTED KIDNEY [None]
  - HAEMATOMA [None]
  - NEPHRITIS [None]
  - URINARY TRACT INFECTION [None]
